FAERS Safety Report 14539290 (Version 1)
Quarter: 2018Q1

REPORT INFORMATION
  Report Type: Spontaneous
  Country: US (occurrence: US)
  Receive Date: 20180215
  Receipt Date: 20180215
  Transmission Date: 20180509
  Serious: Yes (Other)
  Sender: FDA-Public Use
  Company Number: None

PATIENT
  Age: 10 Year
  Sex: Male
  Weight: 22.5 kg

DRUGS (4)
  1. MULTIVITAMIN FOR KIDS [Concomitant]
  2. METADATE CD [Suspect]
     Active Substance: METHYLPHENIDATE HYDROCHLORIDE
     Indication: ATTENTION DEFICIT/HYPERACTIVITY DISORDER
     Dosage: ?          QUANTITY:1 CAPSULE(S);?
     Route: 048
     Dates: start: 20150622, end: 20170622
  3. FISH OIL [Concomitant]
     Active Substance: FISH OIL
  4. METHYLPHENIDATE ER [Suspect]
     Active Substance: METHYLPHENIDATE
     Indication: ATTENTION DEFICIT/HYPERACTIVITY DISORDER
     Dosage: ?          QUANTITY:1 CAPSULE(S);?
     Route: 048
     Dates: start: 20170622, end: 20171025

REACTIONS (9)
  - Anger [None]
  - Vomiting [None]
  - Suicidal ideation [None]
  - Abnormal behaviour [None]
  - Homicidal ideation [None]
  - Abdominal pain upper [None]
  - Hypersomnia [None]
  - Withdrawal syndrome [None]
  - Anxiety [None]

NARRATIVE: CASE EVENT DATE: 20171025
